FAERS Safety Report 4771834-9 (Version None)
Quarter: 2005Q3

REPORT INFORMATION
  Report Type: 
  Country: None (occurrence: None)
  Receive Date: 20050916
  Receipt Date: 20050907
  Transmission Date: 20060218
  Serious: Yes (Hospitalization)
  Sender: FDA-Public Use
  Company Number: US-SANOFI-SYNTHELABO-A03200502826

PATIENT
  Sex: Female

DRUGS (3)
  1. PLAVIX [Suspect]
     Indication: ACUTE CORONARY SYNDROME
     Dosage: UNK
     Route: 048
  2. LOVENOX [Suspect]
     Indication: CATHETERISATION CARDIAC
     Route: 058
     Dates: end: 20050815
  3. ASPIRIN [Concomitant]
     Dosage: UNK
     Route: 048

REACTIONS (5)
  - HYDRONEPHROSIS [None]
  - POST PROCEDURAL HAEMATOMA [None]
  - PROCEDURAL PAIN [None]
  - RETROPERITONEAL HAEMATOMA [None]
  - URINARY BLADDER HAEMORRHAGE [None]
